FAERS Safety Report 9176529 (Version 1)
Quarter: 2013Q1

REPORT INFORMATION
  Report Type: Spontaneous
  Country: CA (occurrence: CA)
  Receive Date: 20130321
  Receipt Date: 20130321
  Transmission Date: 20140127
  Serious: Yes (Other)
  Sender: FDA-Public Use
  Company Number: CA-BAYER-2013-030874

PATIENT
  Age: 42 Year
  Sex: Female

DRUGS (2)
  1. BETASERON [Suspect]
     Indication: RELAPSING-REMITTING MULTIPLE SCLEROSIS
     Dosage: 0.5 MG, QOD
     Route: 058
     Dates: start: 201207
  2. VERAPAMIL SLOW RELEASE [Concomitant]
     Indication: MIGRAINE
     Dosage: 240 MG, QD

REACTIONS (6)
  - Central nervous system inflammation [None]
  - Muscular weakness [None]
  - Muscle spasticity [None]
  - Decreased vibratory sense [None]
  - Hyperreflexia [None]
  - Therapeutic product ineffective [None]
